FAERS Safety Report 17262461 (Version 7)
Quarter: 2020Q3

REPORT INFORMATION
  Report Type: Spontaneous
  Country: US (occurrence: US)
  Receive Date: 20200113
  Receipt Date: 20200813
  Transmission Date: 20201102
  Serious: No
  Sender: FDA-Public Use
  Company Number: US-PFIZER INC-2020012008

PATIENT
  Age: 18 Year
  Sex: Female
  Weight: 90.72 kg

DRUGS (2)
  1. DILANTIN [Suspect]
     Active Substance: PHENYTOIN
     Indication: SEIZURE
     Dosage: 300 MG, 2X/DAY (3 EVERY 12 HOURS/SIG: TAKE 3 CAPSULES BY MOUTH EVERY 12 HOURS)
     Route: 048
  2. DILANTIN [Suspect]
     Active Substance: PHENYTOIN
     Dosage: 300 MG, 2X/DAY
     Route: 048

REACTIONS (2)
  - Fatigue [Not Recovered/Not Resolved]
  - Product prescribing error [Unknown]
